FAERS Safety Report 21027919 (Version 2)
Quarter: 2022Q3

REPORT INFORMATION
  Report Type: Spontaneous
  Country: RO (occurrence: RO)
  Receive Date: 20220630
  Receipt Date: 20220702
  Transmission Date: 20221027
  Serious: Yes (Other)
  Sender: FDA-Public Use
  Company Number: RO-ABBVIE-22K-135-4446280-00

PATIENT
  Age: 53 Year
  Sex: Female

DRUGS (2)
  1. VENETOCLAX [Suspect]
     Active Substance: VENETOCLAX
     Indication: Chronic lymphocytic leukaemia stage 3
     Route: 048
     Dates: start: 201904
  2. DEXA [Concomitant]
     Indication: Chronic lymphocytic leukaemia stage 3
     Dosage: HIGH DOSE
     Dates: end: 202204

REACTIONS (13)
  - Vasogenic cerebral oedema [Not Recovered/Not Resolved]
  - Central nervous system lesion [Unknown]
  - Posterior reversible encephalopathy syndrome [Unknown]
  - Progressive multifocal leukoencephalopathy [Not Recovered/Not Resolved]
  - Pancytopenia [Unknown]
  - Haematoma [Unknown]
  - Lymphadenopathy [Recovered/Resolved]
  - Hepatomegaly [Recovered/Resolved]
  - Splenomegaly [Unknown]
  - Lymphadenopathy [Recovered/Resolved]
  - Chronic sinusitis [Unknown]
  - Visual acuity reduced [Unknown]
  - COVID-19 [Recovered/Resolved]

NARRATIVE: CASE EVENT DATE: 20210701
